FAERS Safety Report 21238192 (Version 1)
Quarter: 2022Q3

REPORT INFORMATION
  Report Type: Spontaneous
  Country: JP (occurrence: JP)
  Receive Date: 20220822
  Receipt Date: 20220822
  Transmission Date: 20221027
  Serious: Yes (Hospitalization, Other)
  Sender: FDA-Public Use
  Company Number: JP-ONO-2022JP018595

PATIENT
  Age: 8 Decade
  Sex: Male

DRUGS (3)
  1. OPDIVO [Suspect]
     Active Substance: NIVOLUMAB
     Indication: Gastric cancer
     Route: 041
     Dates: start: 20220106, end: 20220421
  2. TS-1 [Concomitant]
     Active Substance: GIMERACIL\OTERACIL\TEGAFUR
     Indication: Gastric cancer
     Dosage: UNK
     Route: 065
  3. OXALIPLATIN [Concomitant]
     Active Substance: OXALIPLATIN
     Indication: Gastric cancer
     Dosage: UNK
     Route: 065

REACTIONS (7)
  - Dyspnoea [Unknown]
  - Oxygen saturation decreased [Unknown]
  - Pyrexia [Unknown]
  - Organising pneumonia [Unknown]
  - Chest X-ray abnormal [Unknown]
  - Infection [Unknown]
  - Interstitial lung disease [Not Recovered/Not Resolved]

NARRATIVE: CASE EVENT DATE: 20220428
